FAERS Safety Report 7010872-2 (Version None)
Quarter: 2010Q3

REPORT INFORMATION
  Report Type: 
  Country: None (occurrence: None)
  Receive Date: 20100923
  Receipt Date: 20100917
  Transmission Date: 20110219
  Serious: Yes (Hospitalization, Other)
  Sender: FDA-Public Use
  Company Number: US-MERCK-1007USA02395

PATIENT
  Age: 82 Year
  Sex: Female

DRUGS (15)
  1. VYTORIN [Suspect]
     Indication: BLOOD CHOLESTEROL INCREASED
     Route: 048
  2. NORCO [Concomitant]
     Dosage: 5/500 ONE BID PRN
     Route: 065
  3. ALBUTEROL [Concomitant]
     Dosage: PRN
     Route: 065
  4. ASPIRIN [Concomitant]
     Route: 065
  5. PLAVIX [Concomitant]
     Route: 065
  6. DECADRON [Concomitant]
     Route: 048
  7. REVLIMID [Concomitant]
     Route: 065
  8. LISINOPRIL [Concomitant]
     Route: 048
  9. LORAZEPAM [Concomitant]
     Dosage: HALF TAB TO ONE TAB TID PRN
     Route: 065
  10. MEGACE [Concomitant]
     Route: 065
  11. VITAMINS (UNSPECIFIED) [Concomitant]
     Route: 065
  12. NITRO-DUR [Concomitant]
     Dosage: PATCH ON IN A.M., OFF
     Route: 065
  13. COMPAZINE [Concomitant]
     Route: 065
  14. AMBIEN CR [Concomitant]
     Dosage: Q.H.S
     Route: 065
  15. ZOFRAN [Concomitant]
     Dosage: TID
     Route: 065

REACTIONS (2)
  - HEPATITIS B [None]
  - RHABDOMYOLYSIS [None]
